FAERS Safety Report 7120828-7 (Version None)
Quarter: 2010Q4

REPORT INFORMATION
  Report Type: 
  Country: None (occurrence: None)
  Receive Date: 20101124
  Receipt Date: 20101112
  Transmission Date: 20110411
  Serious: Yes (Hospitalization, Other)
  Sender: FDA-Public Use
  Company Number: CH-JNJFOC-20101104092

PATIENT
  Age: 25 Year
  Sex: Female

DRUGS (9)
  1. CONCERTA [Suspect]
     Indication: ATTENTION DEFICIT/HYPERACTIVITY DISORDER
     Dosage: 1 IN 1 DAY
     Route: 048
  2. CONCERTA [Suspect]
     Dosage: 1 IN 1 DAY
     Route: 048
  3. CONCERTA [Suspect]
     Dosage: 1 IN 1 DAY
     Route: 048
  4. CONCERTA [Suspect]
     Dosage: 1 IN 1 DAY
     Route: 048
  5. TRAMAL RETARD [Suspect]
     Indication: PAIN
     Route: 065
  6. RITALIN [Suspect]
     Indication: ATTENTION DEFICIT/HYPERACTIVITY DISORDER
     Dosage: PER DAY
     Route: 065
  7. KEPPRA [Suspect]
     Indication: EPILEPSY
     Dosage: TWICE A DAY
     Route: 065
  8. KEPPRA [Suspect]
     Route: 065
  9. MORPHINE [Suspect]
     Indication: PAIN
     Dosage: 40-20-20 MG DAILY AND 40 MG IN RESERVE TAKEN UNTIL DELIVERY
     Route: 065

REACTIONS (4)
  - ABDOMINAL PAIN [None]
  - DRUG EXPOSURE DURING PREGNANCY [None]
  - FATIGUE [None]
  - PREMATURE LABOUR [None]
